FAERS Safety Report 16662774 (Version 1)
Quarter: 2019Q3

REPORT INFORMATION
  Report Type: Report from Study
  Country: US (occurrence: US)
  Receive Date: 20190802
  Receipt Date: 20190802
  Transmission Date: 20191004
  Serious: No
  Sender: FDA-Public Use
  Company Number: US-EXELIXIS-CABO-19018183

PATIENT
  Sex: Female

DRUGS (16)
  1. CETIRIZINE [Concomitant]
     Active Substance: CETIRIZINE HYDROCHLORIDE
  2. ATORVASTATIN [Concomitant]
     Active Substance: ATORVASTATIN
  3. RANITIDINE. [Concomitant]
     Active Substance: RANITIDINE
  4. HYDROMORPHONE [Concomitant]
     Active Substance: HYDROMORPHONE
  5. CALCITRIOL. [Concomitant]
     Active Substance: CALCITRIOL
  6. FENTANYL. [Concomitant]
     Active Substance: FENTANYL
  7. GABAPENTIN. [Concomitant]
     Active Substance: GABAPENTIN
  8. BACLOFEN. [Concomitant]
     Active Substance: BACLOFEN
  9. ZOLOFT [Concomitant]
     Active Substance: SERTRALINE HYDROCHLORIDE
  10. LEVOTHYROXINE. [Concomitant]
     Active Substance: LEVOTHYROXINE
  11. CABOMETYX [Suspect]
     Active Substance: CABOZANTINIB S-MALATE
     Indication: RENAL CANCER
     Dosage: 60 MG, QD
     Route: 048
     Dates: start: 20190102
  12. ZOFRAN [Concomitant]
     Active Substance: ONDANSETRON HYDROCHLORIDE
  13. QUETIAPINE. [Concomitant]
     Active Substance: QUETIAPINE
  14. PREDNISONE. [Concomitant]
     Active Substance: PREDNISONE
  15. TIZANIDINE. [Concomitant]
     Active Substance: TIZANIDINE
  16. HYDROCORTISONE. [Concomitant]
     Active Substance: HYDROCORTISONE

REACTIONS (9)
  - Myalgia [Not Recovered/Not Resolved]
  - Stomatitis [Not Recovered/Not Resolved]
  - Bone pain [Not Recovered/Not Resolved]
  - Oral mucosal blistering [Not Recovered/Not Resolved]
  - Syncope [Not Recovered/Not Resolved]
  - Muscular weakness [Not Recovered/Not Resolved]
  - Dizziness [Not Recovered/Not Resolved]
  - Asthenia [Not Recovered/Not Resolved]
  - Urinary incontinence [Not Recovered/Not Resolved]
